FAERS Safety Report 13603532 (Version 1)
Quarter: 2017Q2

REPORT INFORMATION
  Report Type: Spontaneous
  Country: GB (occurrence: GB)
  Receive Date: 20170601
  Receipt Date: 20170601
  Transmission Date: 20170830
  Serious: Yes (Other)
  Sender: FDA-Public Use
  Company Number: GB-GILEAD-2017-0275167

PATIENT
  Age: 37 Year
  Sex: Female
  Weight: 82.7 kg

DRUGS (2)
  1. RALTEGRAVIR. [Suspect]
     Active Substance: RALTEGRAVIR
     Indication: PROPHYLAXIS AGAINST HIV INFECTION
     Dosage: 400 MG, BID
     Route: 048
     Dates: start: 20160804, end: 20160823
  2. TRUVADA [Suspect]
     Active Substance: EMTRICITABINE\TENOFOVIR DISOPROXIL FUMARATE
     Indication: PROPHYLAXIS AGAINST HIV INFECTION
     Route: 048
     Dates: start: 20160804, end: 20160823

REACTIONS (6)
  - Exposure during pregnancy [Recovered/Resolved]
  - Vaginal haemorrhage [Unknown]
  - Malaise [Unknown]
  - Abortion spontaneous [Recovered/Resolved]
  - Headache [Unknown]
  - Off label use [Recovered/Resolved]

NARRATIVE: CASE EVENT DATE: 20160804
